FAERS Safety Report 10659701 (Version 2)
Quarter: 2015Q2

REPORT INFORMATION
  Report Type: Spontaneous
  Country: US (occurrence: US)
  Receive Date: 20141217
  Receipt Date: 20150428
  Transmission Date: 20150821
  Serious: Yes (Hospitalization, Other)
  Sender: FDA-Public Use
  Company Number: US-PFIZER INC-2014343678

PATIENT
  Age: 47 Year
  Sex: Male
  Weight: 86 kg

DRUGS (10)
  1. ALPRAZOLAM. [Concomitant]
     Active Substance: ALPRAZOLAM
     Dosage: 1 MG, 4X/DAY
     Dates: start: 2004
  2. OMEPRAZOLE. [Concomitant]
     Active Substance: OMEPRAZOLE
     Dosage: 20 MG, 1X/DAY
     Dates: start: 2004
  3. OXYCODONE [Concomitant]
     Active Substance: OXYCODONE
     Indication: PAIN
     Dosage: 15 MG, EVERY 4 HRS
     Dates: start: 2014
  4. RAPAMUNE [Suspect]
     Active Substance: SIROLIMUS
     Dosage: 1 MG, 1X/DAY
     Dates: start: 2004
  5. POLYETHYLENE GLYCOL [Concomitant]
     Active Substance: POLYETHYLENE GLYCOLS
     Dosage: 17 G, 1X/DAY
     Dates: start: 2004
  6. METOPROLOL [Concomitant]
     Active Substance: METOPROLOL
     Dosage: 25 MG, 3X/DAY
     Dates: start: 2014
  7. RAPAMUNE [Suspect]
     Active Substance: SIROLIMUS
     Indication: LIVER TRANSPLANT
     Dosage: 1 MG, 1X/DAY
     Dates: start: 2004
  8. LACTULOSE. [Concomitant]
     Active Substance: LACTULOSE
     Dosage: 15 ML, AS NEEDED
     Dates: start: 2004
  9. ZOLPIDEM [Concomitant]
     Active Substance: ZOLPIDEM\ZOLPIDEM TARTRATE
     Dosage: 10 MG, 1X/DAY
     Dates: start: 2004
  10. MORPHINE [Concomitant]
     Active Substance: MORPHINE
     Dosage: 60 MG, 2X/DAY
     Dates: start: 2010

REACTIONS (3)
  - Hernia [Not Recovered/Not Resolved]
  - Product use issue [Unknown]
  - Hernia [Not Recovered/Not Resolved]

NARRATIVE: CASE EVENT DATE: 2004
